FAERS Safety Report 6272783-X (Version None)
Quarter: 2009Q3

REPORT INFORMATION
  Report Type: 
  Country: None (occurrence: None)
  Receive Date: 20090717
  Receipt Date: 20090710
  Transmission Date: 20100115
  Serious: Yes (Disabling)
  Sender: FDA-Public Use
  Company Number: JP-ABBOTT-09P-087-0583753-00

PATIENT
  Sex: Female
  Weight: 17.2 kg

DRUGS (4)
  1. CLARITH TAB 50 MG [Suspect]
     Indication: OTITIS MEDIA
     Route: 048
     Dates: start: 20090309, end: 20090514
  2. OTHER CONCOMITANT MEDICATIONS [Concomitant]
     Indication: DRUG USE FOR UNKNOWN INDICATION
  3. MUCODYNE [Concomitant]
     Indication: OTITIS MEDIA
     Route: 048
     Dates: start: 20090509, end: 20090514
  4. MUCODYNE [Concomitant]
     Route: 048
     Dates: start: 20090520, end: 20090528

REACTIONS (1)
  - SUPRAVENTRICULAR EXTRASYSTOLES [None]
